FAERS Safety Report 19067827 (Version 2)
Quarter: 2021Q2

REPORT INFORMATION
  Report Type: Spontaneous
  Country: DE (occurrence: DE)
  Receive Date: 20210329
  Receipt Date: 20210505
  Transmission Date: 20210717
  Serious: Yes (Death, Other)
  Sender: FDA-Public Use
  Company Number: DE-PFIZER INC-2021309645

PATIENT

DRUGS (2)
  1. OXYTOCIN. [Suspect]
     Active Substance: OXYTOCIN
     Indication: LABOUR INDUCTION
     Dosage: 250 ML
     Route: 064
     Dates: start: 20201221, end: 20201221
  2. CYTOTEC [Suspect]
     Active Substance: MISOPROSTOL
     Indication: LABOUR INDUCTION
     Dosage: 3 DF, ONCE
     Route: 064
     Dates: start: 20201221, end: 20201221

REACTIONS (6)
  - Foetal exposure during delivery [Fatal]
  - Neonatal respiratory distress [Fatal]
  - Neonatal tachycardia [Fatal]
  - Oxygen saturation decreased [Fatal]
  - Neonatal respiratory arrest [Fatal]
  - Brain oedema [Fatal]

NARRATIVE: CASE EVENT DATE: 20201221
